FAERS Safety Report 11881601 (Version 2)
Quarter: 2016Q2

REPORT INFORMATION
  Report Type: Report from Study
  Country: US (occurrence: US)
  Receive Date: 20151231
  Receipt Date: 20160506
  Transmission Date: 20160815
  Serious: Yes (Other)
  Sender: FDA-Public Use
  Company Number: PHEH2015US027474

PATIENT
  Sex: Male

DRUGS (5)
  1. AMANTADINE [Concomitant]
     Active Substance: AMANTADINE
     Indication: FATIGUE
     Dosage: 100 MG, BID
     Route: 065
  2. VITAMIN D [Concomitant]
     Active Substance: CHOLECALCIFEROL
     Indication: PRODUCT USED FOR UNKNOWN INDICATION
     Dosage: UNK
     Route: 065
  3. GILENYA [Suspect]
     Active Substance: FINGOLIMOD HYDROCHLORIDE
     Indication: MULTIPLE SCLEROSIS
     Dosage: 0.5 MG, QD
     Route: 048
     Dates: start: 2012
  4. OMEPRAZOLE. [Concomitant]
     Active Substance: OMEPRAZOLE
     Indication: PRODUCT USED FOR UNKNOWN INDICATION
     Dosage: UNK
     Route: 065
  5. MULTI VITAMIN [Concomitant]
     Active Substance: VITAMINS
     Indication: PRODUCT USED FOR UNKNOWN INDICATION
     Dosage: UNK
     Route: 065

REACTIONS (18)
  - Neuropathy peripheral [Not Recovered/Not Resolved]
  - Sleep apnoea syndrome [Unknown]
  - Balance disorder [Unknown]
  - Confusional state [Unknown]
  - Pollakiuria [Unknown]
  - Ear discomfort [Unknown]
  - Restless legs syndrome [Recovering/Resolving]
  - Feeling abnormal [Unknown]
  - Head discomfort [Unknown]
  - Insomnia [Unknown]
  - Muscle spasticity [Unknown]
  - Haemochromatosis [Recovering/Resolving]
  - Sensory disturbance [Unknown]
  - Dizziness [Unknown]
  - Blood pressure increased [Unknown]
  - Pain in extremity [Unknown]
  - Fall [Unknown]
  - Memory impairment [Unknown]
